FAERS Safety Report 25057786 (Version 1)
Quarter: 2025Q1

REPORT INFORMATION
  Report Type: Spontaneous
  Country: US (occurrence: None)
  Receive Date: 20250307
  Receipt Date: 20250307
  Transmission Date: 20250409
  Serious: Yes (Death)
  Sender: FDA-CTU
  Company Number: None

PATIENT
  Age: 65 Year
  Sex: Female
  Weight: 59.06 kg

DRUGS (9)
  1. CAPECITABINE [Suspect]
     Active Substance: CAPECITABINE
     Indication: Breast cancer female
     Route: 048
     Dates: start: 20240901
  2. CAPECITABINE [Suspect]
     Active Substance: CAPECITABINE
     Indication: Metastases to bone
  3. ATIVAN [Concomitant]
     Active Substance: LORAZEPAM
  4. MS CONTIN [Concomitant]
     Active Substance: MORPHINE SULFATE
  5. MORPHINE SULFATE [Concomitant]
     Active Substance: MORPHINE SULFATE
  6. NARCAN [Concomitant]
     Active Substance: NALOXONE HYDROCHLORIDE
  7. Pericolace [Concomitant]
  8. EMLA [Concomitant]
     Active Substance: LIDOCAINE\PRILOCAINE
  9. PEPCID [Concomitant]
     Active Substance: FAMOTIDINE

REACTIONS (3)
  - Breast cancer female [None]
  - Metastases to bone [None]
  - Disease progression [None]

NARRATIVE: CASE EVENT DATE: 20250227
